FAERS Safety Report 4283717-1 (Version None)
Quarter: 2004Q1

REPORT INFORMATION
  Report Type: 
  Country: None (occurrence: None)
  Receive Date: 20040202
  Receipt Date: 20031028
  Transmission Date: 20041129
  Serious: Yes (Life-Threatening, Hospitalization, Other)
  Sender: FDA-Public Use
  Company Number: WAES 0310USA03116

PATIENT
  Age: 66 Year
  Sex: Female

DRUGS (4)
  1. TIAZAC [Concomitant]
  2. ZETIA [Suspect]
     Indication: HYPERLIPIDAEMIA
     Route: 048
     Dates: start: 20030501, end: 20030619
  3. ADVICOR [Concomitant]
     Indication: HYPERLIPIDAEMIA
     Dates: start: 20030501, end: 20030619
  4. GLUCOPHAGE [Concomitant]

REACTIONS (3)
  - CONSTIPATION [None]
  - DIVERTICULITIS [None]
  - DIVERTICULUM INTESTINAL HAEMORRHAGIC [None]
